FAERS Safety Report 21176563 (Version 1)
Quarter: 2022Q3

REPORT INFORMATION
  Report Type: Spontaneous
  Country: IQ (occurrence: None)
  Receive Date: 20220805
  Receipt Date: 20220805
  Transmission Date: 20221027
  Serious: Yes (Other)
  Sender: FDA-Public Use
  Company Number: IQ-ROCHE-3153715

PATIENT
  Age: 53 Year
  Sex: Male
  Weight: 128 kg

DRUGS (12)
  1. RITUXIMAB [Suspect]
     Active Substance: RITUXIMAB
     Indication: Diffuse large B-cell lymphoma
     Dosage: R-CHOP, 8 CYCLES
     Route: 065
     Dates: start: 202108, end: 202201
  2. RITUXIMAB [Suspect]
     Active Substance: RITUXIMAB
     Dosage: R-GEMOX , 4CYCLES
     Route: 065
     Dates: start: 202202, end: 202204
  3. RITUXIMAB [Suspect]
     Active Substance: RITUXIMAB
     Dosage: R-ICE , 3CYCLES
     Route: 065
     Dates: start: 202205, end: 202206
  4. CYCLOPHOSPHAMIDE [Suspect]
     Active Substance: CYCLOPHOSPHAMIDE
     Indication: Diffuse large B-cell lymphoma
     Dosage: R-CHOP, 8 CYCLES
     Route: 065
     Dates: start: 202108, end: 202201
  5. DOXORUBICIN HYDROCHLORIDE [Suspect]
     Active Substance: DOXORUBICIN HYDROCHLORIDE
     Indication: Diffuse large B-cell lymphoma
     Dosage: R-CHOP, 8 CYCLES
     Route: 065
     Dates: start: 202108, end: 202201
  6. VINCRISTINE [Suspect]
     Active Substance: VINCRISTINE
     Indication: Diffuse large B-cell lymphoma
     Dosage: R-CHOP, 8 CYCLES
     Route: 065
     Dates: start: 202108, end: 202201
  7. PREDNISONE [Suspect]
     Active Substance: PREDNISONE
     Indication: Diffuse large B-cell lymphoma
     Dosage: R-CHOP, 8 CYCLES
     Route: 065
     Dates: start: 202108, end: 202201
  8. GEMCITABINE [Suspect]
     Active Substance: GEMCITABINE
     Indication: Diffuse large B-cell lymphoma
     Dosage: R-GEMOX, 4 CYCLES
     Route: 065
     Dates: start: 202202, end: 202204
  9. OXALIPLATIN [Suspect]
     Active Substance: OXALIPLATIN
     Indication: Diffuse large B-cell lymphoma
     Dosage: R-GEMOX, 4 CYCLES
     Route: 065
     Dates: start: 202202, end: 202204
  10. IFOSFAMIDE [Suspect]
     Active Substance: IFOSFAMIDE
     Indication: Diffuse large B-cell lymphoma
     Dosage: R-ICE, 3 CYCLES
     Route: 065
     Dates: start: 202205, end: 202206
  11. CARBOPLATIN [Suspect]
     Active Substance: CARBOPLATIN
     Indication: Diffuse large B-cell lymphoma
     Dosage: R-ICE, 3 CYCLES
     Route: 065
     Dates: start: 202205, end: 202206
  12. ETOPOSIDE PHOSPHATE [Suspect]
     Active Substance: ETOPOSIDE PHOSPHATE
     Indication: Diffuse large B-cell lymphoma
     Dosage: R-ICE, 3 CYCLES
     Route: 065
     Dates: start: 202205, end: 202206

REACTIONS (1)
  - Disease progression [Unknown]
